FAERS Safety Report 24966887 (Version 6)
Quarter: 2025Q2

REPORT INFORMATION
  Report Type: Spontaneous
  Country: JP (occurrence: JP)
  Receive Date: 20250213
  Receipt Date: 20250515
  Transmission Date: 20250717
  Serious: Yes (Death, Life-Threatening, Other)
  Sender: PFIZER
  Company Number: JP-PFIZER INC-PV202500016809

PATIENT
  Age: 58 Year
  Sex: Female
  Weight: 55 kg

DRUGS (11)
  1. ELREXFIO [Suspect]
     Active Substance: ELRANATAMAB-BCMM
     Indication: Plasma cell myeloma
     Route: 058
     Dates: start: 20250114, end: 20250114
  2. ELREXFIO [Suspect]
     Active Substance: ELRANATAMAB-BCMM
     Route: 058
     Dates: start: 20250120, end: 20250120
  3. ELREXFIO [Suspect]
     Active Substance: ELRANATAMAB-BCMM
     Route: 058
     Dates: start: 20250124, end: 20250124
  4. ACYCLOVIR [Concomitant]
     Active Substance: ACYCLOVIR
     Indication: Prophylaxis
     Dosage: 200 MG, 1X/DAY, AFTER BREAKFAST, 6 DAYS
     Route: 048
  5. SULFAMETHOXAZOLE\TRIMETHOPRIM [Concomitant]
     Active Substance: SULFAMETHOXAZOLE\TRIMETHOPRIM
     Indication: Prophylaxis
     Dosage: UNK, 1X/DAY, AFTER BREKFAST, EVERY TUESDAY AND FRIDAY, 4 DAYS
     Route: 048
  6. ESOMEPRAZOLE SAWAI [Concomitant]
     Indication: Prophylaxis
     Dosage: 20 MG, 1X/DAY, AFTER BREAKFAST, 14 DAYS
     Route: 048
  7. PENTASA [Concomitant]
     Active Substance: MESALAMINE
     Indication: Colitis ulcerative
     Dosage: 424 G, 2X/DAY, AFTER BREAKFAST AND DINNER, 14 DAYS
     Route: 048
  8. MAGNESIUM OXIDE [Concomitant]
     Active Substance: MAGNESIUM OXIDE
     Indication: Prophylaxis
     Dosage: 1320 MG, 2X/DAY,  AFTER BREAKFAST AND DINNER, 14 DAYS
     Route: 048
  9. BERIZYM [CELLULASE;DIASTASE;LIPASE;PANCREATIN] [Concomitant]
     Indication: Colitis ulcerative
     Dosage: 3 G, 3X/DAY, AFTER MEALS, 13 DAYS
     Route: 048
  10. HERBALS [Concomitant]
     Active Substance: HERBALS
     Indication: Colitis ulcerative
     Dosage: 3 DF, 3X/DAY, AFTER MEALS, 13 DAYS
     Route: 048
  11. METHYLCOBALAMIN [Concomitant]
     Active Substance: METHYLCOBALAMIN
     Indication: Colitis ulcerative
     Dosage: 1500 UG, 3X/DAY, AFTER MEALS, 13 DAYS
     Route: 048

REACTIONS (6)
  - Interstitial lung disease [Fatal]
  - Loss of consciousness [Fatal]
  - Respiratory arrest [Fatal]
  - Cardiac arrest [Fatal]
  - Neutrophil count decreased [Recovered/Resolved]
  - Cytokine release syndrome [Recovered/Resolved]

NARRATIVE: CASE EVENT DATE: 20250115
